FAERS Safety Report 9350682 (Version 1)
Quarter: 2013Q2

REPORT INFORMATION
  Report Type: Report from Study
  Country: IT (occurrence: IT)
  Receive Date: 20130617
  Receipt Date: 20130617
  Transmission Date: 20140414
  Serious: Yes (Other)
  Sender: FDA-Public Use
  Company Number: PHHY2013IT060981

PATIENT
  Sex: 0

DRUGS (1)
  1. GLIVEC [Suspect]
     Dosage: UNK UKN, UNK

REACTIONS (1)
  - Chloroma [Unknown]
